FAERS Safety Report 8519320-4 (Version None)
Quarter: 2012Q3

REPORT INFORMATION
  Report Type: 
  Country: None (occurrence: None)
  Receive Date: 20120718
  Receipt Date: 20120716
  Transmission Date: 20120928
  Serious: Yes (Hospitalization)
  Sender: FDA-Public Use
  Company Number: RU-ROCHE-728742

PATIENT
  Sex: Male
  Weight: 73 kg

DRUGS (6)
  1. ENALAPRIL MALEATE [Concomitant]
     Indication: HYPERTENSION
  2. AVASTIN [Suspect]
     Indication: RENAL CANCER
     Dosage: FREQUENCY: EVERY OTHER WEEK.LAST DOSE PRIOR TO SAE ON 18/AUG/2010
     Route: 042
     Dates: start: 20090611, end: 20100909
  3. METOPROLOL SUCCINATE [Concomitant]
     Indication: HYPERTENSION
  4. TEMSIROLIMUS [Suspect]
     Indication: RENAL CANCER
     Dosage: FREQUENCY: EVERY WEEK, LAST DOSE PRIOR TO SAE ON 09/SEP/2010
     Route: 042
  5. TEMSIROLIMUS [Suspect]
     Route: 042
  6. AVASTIN [Suspect]
     Route: 042

REACTIONS (1)
  - OSTEOMYELITIS [None]
